FAERS Safety Report 6735854-7 (Version None)
Quarter: 2010Q2

REPORT INFORMATION
  Report Type: 
  Country: None (occurrence: None)
  Receive Date: 20100521
  Receipt Date: 20100514
  Transmission Date: 20101027
  Serious: Yes (Hospitalization)
  Sender: FDA-Public Use
  Company Number: A0853947A

PATIENT
  Age: 64 Year
  Sex: Male

DRUGS (15)
  1. FLOVENT [Suspect]
     Indication: ASTHMA
     Dosage: 1PUFF TWICE PER DAY
     Route: 055
     Dates: start: 20100321, end: 20100321
  2. METFORMIN HCL [Concomitant]
  3. GLYSET [Concomitant]
  4. STARLIX [Concomitant]
  5. ATROVENT [Concomitant]
  6. XANAX [Concomitant]
  7. ZITHROMAX [Concomitant]
  8. TYLENOL [Concomitant]
  9. DOXYCYCLINE [Concomitant]
  10. BIAXIN [Concomitant]
  11. ALBUTEROL [Concomitant]
  12. COMBIVENT [Concomitant]
  13. COUGH SYRUP WITH CODEINE [Concomitant]
  14. PREDNISONE [Concomitant]
  15. OXYGEN [Concomitant]

REACTIONS (9)
  - BRONCHIAL IRRITATION [None]
  - BRONCHITIS [None]
  - CHILLS [None]
  - COUGH [None]
  - DRY THROAT [None]
  - DYSPNOEA [None]
  - PRODUCT QUALITY ISSUE [None]
  - PYREXIA [None]
  - THROAT IRRITATION [None]
